FAERS Safety Report 7851561-1 (Version None)
Quarter: 2011Q4

REPORT INFORMATION
  Report Type: 
  Country: None (occurrence: None)
  Receive Date: 20111026
  Receipt Date: 20111017
  Transmission Date: 20120403
  Serious: Yes (Other)
  Sender: FDA-Public Use
  Company Number: JP-ASTRAZENECA-2011SE58598

PATIENT
  Age: 83 Year
  Sex: Male

DRUGS (2)
  1. ZOLADEX [Suspect]
     Route: 058
  2. ZOLADEX [Suspect]
     Indication: PROSTATE CANCER
     Route: 058
     Dates: start: 20090119

REACTIONS (1)
  - ORTHOSTATIC HYPOTENSION [None]
